FAERS Safety Report 15717342 (Version 5)
Quarter: 2019Q4

REPORT INFORMATION
  Report Type: Spontaneous
  Country: US (occurrence: US)
  Receive Date: 20181213
  Receipt Date: 20191210
  Transmission Date: 20200122
  Serious: No
  Sender: FDA-Public Use
  Company Number: US-PFIZER INC-2018509922

PATIENT
  Age: 13 Year
  Sex: Male
  Weight: 33.11 kg

DRUGS (2)
  1. GENOTROPIN [Suspect]
     Active Substance: SOMATROPIN
     Dosage: 1.4 MG, UNK
     Dates: start: 20181126
  2. GENOTROPIN [Suspect]
     Active Substance: SOMATROPIN
     Dosage: UNK
     Dates: start: 20181201

REACTIONS (3)
  - Pyrexia [Unknown]
  - Product dose omission [Unknown]
  - Device breakage [Unknown]
